FAERS Safety Report 4963327-0 (Version None)
Quarter: 2006Q2

REPORT INFORMATION
  Report Type: 
  Country: None (occurrence: None)
  Receive Date: 20060404
  Receipt Date: 20060404
  Transmission Date: 20061013
  Serious: Yes (Death)
  Sender: FDA-Public Use
  Company Number: None

PATIENT
  Age: 83 Year
  Sex: Female
  Weight: 71.6683 kg

DRUGS (1)
  1. MYLOTARG [Suspect]
     Indication: ACUTE MYELOID LEUKAEMIA
     Dosage: 10 MG   TWICE    IV DRIP
     Route: 041
     Dates: start: 20050810, end: 20050810

REACTIONS (2)
  - ELECTROMECHANICAL DISSOCIATION [None]
  - SUDDEN CARDIAC DEATH [None]
